FAERS Safety Report 11148328 (Version 3)
Quarter: 2015Q3

REPORT INFORMATION
  Report Type: Spontaneous
  Country: FR (occurrence: FR)
  Receive Date: 20150529
  Receipt Date: 20150820
  Transmission Date: 20151125
  Serious: No
  Sender: FDA-Public Use
  Company Number: FR-ACTELION-A-CH2015-118489

PATIENT
  Age: 33 Year
  Sex: Female

DRUGS (7)
  1. TRACLEER [Suspect]
     Active Substance: BOSENTAN
     Dosage: 125 MG, BID
     Route: 048
     Dates: start: 201409, end: 20150507
  2. KARDEGIC [Concomitant]
     Active Substance: ASPIRIN LYSINE
     Dosage: 75 MG, UNK
     Route: 048
     Dates: start: 2009
  3. PROGESTERONE. [Concomitant]
     Active Substance: PROGESTERONE
  4. CAPTOPRIL. [Concomitant]
     Active Substance: CAPTOPRIL
     Dosage: 5 MG, UNK
     Route: 048
     Dates: start: 2009, end: 20150507
  5. INEXIUM [Concomitant]
     Active Substance: ESOMEPRAZOLE
     Dosage: 20 MG, UNK
     Route: 048
     Dates: start: 2009
  6. IMUREL [Concomitant]
     Active Substance: AZATHIOPRINE SODIUM
     Dosage: 100 MG, QD
     Route: 048
     Dates: start: 2009
  7. TRACLEER [Suspect]
     Active Substance: BOSENTAN
     Indication: SCLERODERMA ASSOCIATED DIGITAL ULCER
     Dosage: 62.5 MG, BID
     Route: 048
     Dates: start: 200901, end: 201409

REACTIONS (1)
  - Twin pregnancy [Not Recovered/Not Resolved]
